FAERS Safety Report 15142552 (Version 23)
Quarter: 2020Q1

REPORT INFORMATION
  Report Type: Spontaneous
  Country: CA (occurrence: CA)
  Receive Date: 20180713
  Receipt Date: 20200330
  Transmission Date: 20200409
  Serious: Yes (Other)
  Sender: FDA-Public Use
  Company Number: CA-CELLTRION INC.-2018CA018862

PATIENT

DRUGS (30)
  1. INFLECTRA [Suspect]
     Active Substance: INFLIXIMAB-DYYB
     Dosage: 475 MG, 0, 2, 6, THEN EVERY 8 WEEKS
     Route: 042
     Dates: start: 20180223, end: 20180407
  2. INFLECTRA [Suspect]
     Active Substance: INFLIXIMAB-DYYB
     Dosage: 1000 MG, EVERY 6 WEEKS
     Route: 042
     Dates: start: 20190125
  3. INFLECTRA [Suspect]
     Active Substance: INFLIXIMAB-DYYB
     Dosage: 1000 MG, EVERY 6 WEEKS
     Route: 042
     Dates: start: 20191004
  4. GABAPENTIN. [Concomitant]
     Active Substance: GABAPENTIN
     Dosage: UNK
     Dates: start: 201811
  5. INFLECTRA [Suspect]
     Active Substance: INFLIXIMAB-DYYB
     Dosage: 475 MG, 0, 2, 6, THEN EVERY 8 WEEKS
     Route: 042
     Dates: start: 20180407
  6. INFLECTRA [Suspect]
     Active Substance: INFLIXIMAB-DYYB
     Dosage: 1000 MG, EVERY 6 WEEKS
     Route: 042
     Dates: start: 20200320
  7. CIPRO [Concomitant]
     Active Substance: CIPROFLOXACIN HYDROCHLORIDE
     Dosage: 500 MG, 2XDAY FOR 10 DAYS
     Route: 048
     Dates: start: 201712
  8. PENTASA [Concomitant]
     Active Substance: MESALAMINE
     Dosage: UNK, 2X/DAY
     Route: 048
     Dates: start: 201701, end: 201806
  9. INFLECTRA [Suspect]
     Active Substance: INFLIXIMAB-DYYB
     Dosage: 1000 MG, EVERY 6 WEEKS
     Route: 042
     Dates: start: 20190418
  10. INFLECTRA [Suspect]
     Active Substance: INFLIXIMAB-DYYB
     Dosage: 1000 MG, EVERY 6 WEEKS
     Route: 042
     Dates: start: 20190712
  11. PANTOLOC [Concomitant]
     Active Substance: PANTOPRAZOLE SODIUM
     Dosage: 20 MG, 1X/DAY
     Route: 048
  12. PENTASA [Concomitant]
     Active Substance: MESALAMINE
     Dosage: UNK
     Route: 065
     Dates: start: 2018
  13. PANTOPRAZOLE [Concomitant]
     Active Substance: PANTOPRAZOLE
     Dosage: UNK
  14. GAVISCON COOL [ALGINIC ACID;ALUMINIUM HYDROXIDE;MAGNESIUM TRISILICATE; [Concomitant]
     Active Substance: ALGINIC ACID\ALUMINUM HYDROXIDE\MAGNESIUM TRISILICATE\SODIUM BICARBONATE
     Dosage: UNK
     Route: 065
     Dates: start: 20191105
  15. INFLECTRA [Suspect]
     Active Substance: INFLIXIMAB-DYYB
     Dosage: 980 MG, EVERY 8 WEEKS
     Route: 042
     Dates: start: 20180518, end: 20181105
  16. INFLECTRA [Suspect]
     Active Substance: INFLIXIMAB-DYYB
     Dosage: 980 MG, EVERY 8 WEEKS
     Route: 042
     Dates: start: 20180908
  17. INFLECTRA [Suspect]
     Active Substance: INFLIXIMAB-DYYB
     Dosage: 1000 MG, EVERY 6 WEEKS
     Route: 042
     Dates: start: 20190531
  18. INFLECTRA [Suspect]
     Active Substance: INFLIXIMAB-DYYB
     Dosage: 1000 MG, EVERY 6 WEEKS
     Route: 042
     Dates: start: 20190823
  19. INFLECTRA [Suspect]
     Active Substance: INFLIXIMAB-DYYB
     Dosage: 980 MG, EVERY 8 WEEKS
     Route: 042
     Dates: start: 20181102
  20. INFLECTRA [Suspect]
     Active Substance: INFLIXIMAB-DYYB
     Dosage: 1000 MG, EVERY 6 WEEKS
     Route: 042
     Dates: start: 20181214
  21. INFLECTRA [Suspect]
     Active Substance: INFLIXIMAB-DYYB
     Indication: CROHN^S DISEASE
     Dosage: 475 MG, 0, 2, 6, THEN EVERY 8 WEEKS
     Route: 042
  22. INFLECTRA [Suspect]
     Active Substance: INFLIXIMAB-DYYB
     Dosage: 475 MG, 0, 2, 6, THEN EVERY 8 WEEKS
     Route: 042
     Dates: start: 20180309
  23. INFLECTRA [Suspect]
     Active Substance: INFLIXIMAB-DYYB
     Dosage: 1000 MG, EVERY 6 WEEKS
     Route: 042
     Dates: start: 20191227
  24. FLAGYL [Concomitant]
     Active Substance: METRONIDAZOLE\METRONIDAZOLE HYDROCHLORIDE
     Dosage: 500 MG, 3X/DAY FOR 10 DAYS
     Route: 048
     Dates: start: 201712
  25. EMERGEN-C IMMUNE + [Concomitant]
     Dosage: UNK
     Route: 065
     Dates: start: 2018
  26. IRBESARTAN. [Concomitant]
     Active Substance: IRBESARTAN
     Indication: HYPERTENSION
     Dosage: 150 MG QD (EVERY DAY)
     Route: 048
     Dates: start: 20200316
  27. INFLECTRA [Suspect]
     Active Substance: INFLIXIMAB-DYYB
     Dosage: 980 MG, EVERY 8 WEEKS
     Route: 042
     Dates: start: 20180714
  28. INFLECTRA [Suspect]
     Active Substance: INFLIXIMAB-DYYB
     Dosage: 1000 MG, EVERY 6 WEEKS
     Route: 042
     Dates: start: 20190308
  29. INFLECTRA [Suspect]
     Active Substance: INFLIXIMAB-DYYB
     Dosage: 1000 MG, EVERY 6 WEEKS
     Route: 042
     Dates: start: 20191116
  30. INFLECTRA [Suspect]
     Active Substance: INFLIXIMAB-DYYB
     Dosage: 1000 MG, EVERY 6 WEEKS
     Route: 042
     Dates: start: 20200207

REACTIONS (40)
  - Hypertension [Unknown]
  - Oropharyngeal pain [Not Recovered/Not Resolved]
  - Fatigue [Recovered/Resolved]
  - Skin sensitisation [Recovered/Resolved]
  - Nerve compression [Recovered/Resolved]
  - Retinal tear [Recovered/Resolved]
  - Agitation [Unknown]
  - Ageusia [Unknown]
  - Blood pressure increased [Unknown]
  - Arthralgia [Unknown]
  - Condition aggravated [Unknown]
  - Ligament sprain [Recovering/Resolving]
  - Candida infection [Not Recovered/Not Resolved]
  - Malaise [Not Recovered/Not Resolved]
  - Dyspepsia [Not Recovered/Not Resolved]
  - Headache [Not Recovered/Not Resolved]
  - Scleritis [Recovered/Resolved]
  - Mood swings [Unknown]
  - Epistaxis [Unknown]
  - Contusion [Recovering/Resolving]
  - Nasopharyngitis [Recovering/Resolving]
  - Hypersensitivity [Unknown]
  - Haematochezia [Recovered/Resolved]
  - Uveitis [Unknown]
  - Anorectal discomfort [Unknown]
  - Drug intolerance [Unknown]
  - Eye allergy [Unknown]
  - Vision blurred [Unknown]
  - Paraesthesia [Unknown]
  - Off label use [Unknown]
  - Herpes zoster [Recovering/Resolving]
  - Tongue coated [Unknown]
  - Drug ineffective [Unknown]
  - Cough [Unknown]
  - Stress [Not Recovered/Not Resolved]
  - Colitis ulcerative [Not Recovered/Not Resolved]
  - Burning sensation [Not Recovered/Not Resolved]
  - Pain [Recovered/Resolved]
  - Eye pain [Recovering/Resolving]
  - Sleep deficit [Unknown]

NARRATIVE: CASE EVENT DATE: 2018
